FAERS Safety Report 4912005-2 (Version None)
Quarter: 2006Q1

REPORT INFORMATION
  Report Type: 
  Country: None (occurrence: None)
  Receive Date: 20060215
  Receipt Date: 20060201
  Transmission Date: 20060701
  Serious: Yes (Hospitalization, Congenital Anomaly)
  Sender: FDA-Public Use
  Company Number: PHBS2006US02076

PATIENT
  Sex: Female
  Weight: 3.401 kg

DRUGS (1)
  1. IMATINIB [Suspect]
     Route: 064

REACTIONS (2)
  - INTESTINAL MALROTATION [None]
  - SURGERY [None]
